FAERS Safety Report 22526793 (Version 1)
Quarter: 2023Q2

REPORT INFORMATION
  Report Type: Spontaneous
  Country: CA (occurrence: CA)
  Receive Date: 20230606
  Receipt Date: 20230606
  Transmission Date: 20230722
  Serious: Yes (Other)
  Sender: FDA-Public Use
  Company Number: CA-PFIZER INC-202300003874

PATIENT
  Age: 28 Year
  Sex: Female

DRUGS (6)
  1. RUXIENCE [Suspect]
     Active Substance: RITUXIMAB-PVVR
     Indication: Systemic lupus erythematosus
     Dosage: 1000 MG,1G DAY 0 AND 14
     Route: 042
     Dates: start: 20230215
  2. RUXIENCE [Suspect]
     Active Substance: RITUXIMAB-PVVR
     Dosage: 1000 MG, DAY 15 (DAY 1 AND DAY 15)
     Route: 042
     Dates: start: 20230301
  3. RUXIENCE [Suspect]
     Active Substance: RITUXIMAB-PVVR
     Dosage: 500MG ONE DOSE - NOT YET STARTED
     Route: 042
  4. ACETAMINOPHEN [Concomitant]
     Active Substance: ACETAMINOPHEN
     Indication: Premedication
     Dosage: UNK
     Dates: start: 20230301, end: 20230301
  5. METHYLPREDNISOLONE [Concomitant]
     Active Substance: METHYLPREDNISOLONE
     Indication: Premedication
     Dosage: UNK
     Dates: start: 20230301, end: 20230301
  6. PREDNISONE [Concomitant]
     Active Substance: PREDNISONE
     Dosage: UNK - TAPERED OFF

REACTIONS (7)
  - Renal impairment [Recovering/Resolving]
  - Off label use [Unknown]
  - Pyrexia [Unknown]
  - Palpitations [Recovered/Resolved]
  - Mouth ulceration [Recovered/Resolved]
  - Arthritis [Recovering/Resolving]
  - Proteinuria [Recovering/Resolving]

NARRATIVE: CASE EVENT DATE: 20230101
